FAERS Safety Report 8120604-2 (Version None)
Quarter: 2012Q1

REPORT INFORMATION
  Report Type: 
  Country: None (occurrence: None)
  Receive Date: 20120207
  Receipt Date: 20120124
  Transmission Date: 20120608
  Serious: Yes (Other)
  Sender: FDA-Public Use
  Company Number: BR-PFIZER INC-2012019671

PATIENT
  Sex: Female
  Weight: 78 kg

DRUGS (5)
  1. LYRICA [Suspect]
     Indication: FIBROMYALGIA
     Dosage: 75 MG, EVERY 12 HOURS
     Route: 048
     Dates: start: 20111201, end: 20111201
  2. ISOFLAVONE [Concomitant]
     Dosage: UNSPECIFIED DOSAGE ONCE AT NIGHT
  3. LYRICA [Suspect]
     Indication: PAIN IN EXTREMITY
  4. LEVOTHYROXINE SODIUM [Concomitant]
     Indication: THYROID DISORDER
     Dosage: 75 UG, 1X/DAY (IN THE MORNING)
  5. ATENOLOL [Concomitant]
     Indication: HYPERTENSION
     Dosage: UNK

REACTIONS (5)
  - DYSSTASIA [None]
  - MYDRIASIS [None]
  - DIZZINESS [None]
  - SWELLING FACE [None]
  - MALAISE [None]
